FAERS Safety Report 21336645 (Version 1)
Quarter: 2022Q3

REPORT INFORMATION
  Report Type: Spontaneous
  Country: AR (occurrence: AR)
  Receive Date: 20220915
  Receipt Date: 20220915
  Transmission Date: 20221026
  Serious: Yes (Other)
  Sender: FDA-Public Use
  Company Number: AR-PFIZER INC-PV202200063639

PATIENT
  Age: 72 Year
  Sex: Female

DRUGS (1)
  1. IBRANCE [Suspect]
     Active Substance: PALBOCICLIB

REACTIONS (7)
  - Aortic arteriosclerosis [Unknown]
  - Lymphadenopathy [Unknown]
  - Diaphragmatic hernia [Unknown]
  - Spinal osteoarthritis [Unknown]
  - Goitre [Unknown]
  - Cholelithiasis [Unknown]
  - Pulmonary calcification [Unknown]
